FAERS Safety Report 5221189-0 (Version None)
Quarter: 2007Q1

REPORT INFORMATION
  Report Type: 
  Country: None (occurrence: None)
  Receive Date: 20070126
  Receipt Date: 20070123
  Transmission Date: 20070707
  Serious: Yes (Hospitalization)
  Sender: FDA-Public Use
  Company Number: US-ROXANE LABORATORIES, INC-2007-BP-01062RO

PATIENT
  Age: 75 Year
  Sex: Male

DRUGS (4)
  1. MIDAZOLAM HCL [Suspect]
     Indication: ANAESTHESIA
     Dosage: 1 MG X 1 DOSE
  2. LIDOCAINE [Suspect]
     Indication: ANAESTHESIA
     Dosage: 20 MG X 1 DOSE
  3. PROPOFOL [Suspect]
     Indication: ANAESTHESIA
     Dosage: 50 MG X 1 DOSE
  4. BUPIVACAINE W/LIDOCAINE [Suspect]
     Indication: ANAESTHESIA

REACTIONS (6)
  - ANAESTHESIA [None]
  - APNOEA [None]
  - CONVULSION [None]
  - HYPERTENSION [None]
  - TACHYCARDIA [None]
  - UNRESPONSIVE TO STIMULI [None]
